FAERS Safety Report 4485907-1 (Version None)
Quarter: 2004Q4

REPORT INFORMATION
  Report Type: 
  Country: None (occurrence: None)
  Receive Date: 20041021
  Receipt Date: 20041006
  Transmission Date: 20050328
  Serious: Yes (Other)
  Sender: FDA-Public Use
  Company Number: WSDF_00452

PATIENT
  Sex: Female

DRUGS (2)
  1. WINRHO [Suspect]
     Dates: start: 19880211, end: 19880211
  2. WINRHO [Suspect]
     Dates: start: 19901213, end: 19901213

REACTIONS (1)
  - HEPATITIS C POSITIVE [None]
